FAERS Safety Report 9465615 (Version 1)
Quarter: 2013Q3

REPORT INFORMATION
  Report Type: Spontaneous
  Country: US (occurrence: US)
  Receive Date: 20130820
  Receipt Date: 20130820
  Transmission Date: 20140515
  Serious: No
  Sender: FDA-Public Use
  Company Number: US-009507513-1308USA006653

PATIENT
  Age: 70 Year
  Sex: Female

DRUGS (1)
  1. ASMANEX TWISTHALER [Suspect]
     Dosage: 1 STANDARD OF 60, 1 PUFF TWICE A DAY
     Route: 055
     Dates: start: 20130807

REACTIONS (4)
  - Accidental exposure to product [Unknown]
  - Drug dose omission [Unknown]
  - Product container issue [Unknown]
  - No adverse event [Unknown]
